FAERS Safety Report 10144378 (Version 3)
Quarter: 2014Q4

REPORT INFORMATION
  Report Type: Spontaneous
  Country: CH (occurrence: CH)
  Receive Date: 20140430
  Receipt Date: 20141013
  Transmission Date: 20150528
  Serious: Yes (Death, Other)
  Sender: FDA-Public Use
  Company Number: CH-ABBVIE-14P-151-1232027-00

PATIENT
  Age: 65 Year
  Sex: Male

DRUGS (2)
  1. CREON [Suspect]
     Active Substance: PANCRELIPASE AMYLASE\PANCRELIPASE LIPASE\PANCRELIPASE PROTEASE
     Indication: PANCREATIC INSUFFICIENCY
     Dosage: DOSAGE VARIABLE, AS REQUIRED
     Route: 048
     Dates: start: 20140220
  2. ALL OTHER THERAPEUTIC PRODUCTS [Suspect]
     Active Substance: UNSPECIFIED INGREDIENT
     Indication: CANCER PAIN
     Route: 048

REACTIONS (2)
  - Constipation [Unknown]
  - Metastases to liver [Fatal]

NARRATIVE: CASE EVENT DATE: 201403
